FAERS Safety Report 16558894 (Version 9)
Quarter: 2021Q2

REPORT INFORMATION
  Report Type: Report from Study
  Country: US (occurrence: US)
  Receive Date: 20190711
  Receipt Date: 20210512
  Transmission Date: 20210716
  Serious: Yes (Hospitalization, Other)
  Sender: FDA-Public Use
  Company Number: US-CELGENEUS-USA-20190700693

PATIENT
  Age: 88 Year
  Sex: Male
  Weight: 65.38 kg

DRUGS (1)
  1. AZACITIDINE. [Suspect]
     Active Substance: AZACITIDINE
     Indication: MYELODYSPLASTIC SYNDROME
     Dosage: 110 MILLIGRAM
     Route: 058
     Dates: start: 20180711, end: 20190220

REACTIONS (6)
  - Constipation [Recovered/Resolved]
  - Chest pain [Recovered/Resolved]
  - Staphylococcal bacteraemia [Recovered/Resolved]
  - Osteomyelitis [Not Recovered/Not Resolved]
  - Neck pain [Recovered/Resolved]
  - Abdominal pain [Recovered/Resolved]

NARRATIVE: CASE EVENT DATE: 20181231
